FAERS Safety Report 23854452 (Version 2)
Quarter: 2024Q2

REPORT INFORMATION
  Report Type: Report from Study
  Country: US (occurrence: US)
  Receive Date: 20240514
  Receipt Date: 20240524
  Transmission Date: 20240715
  Serious: No
  Sender: FDA-Public Use
  Company Number: US-002147023-NVSC2024US101485

PATIENT
  Sex: Male

DRUGS (1)
  1. KESIMPTA [Suspect]
     Active Substance: OFATUMUMAB
     Indication: Product used for unknown indication
     Dosage: 20 MG, QW
     Route: 065
     Dates: start: 20240512

REACTIONS (6)
  - Incorrect dose administered [Unknown]
  - Injection related reaction [Unknown]
  - Rhinorrhoea [Unknown]
  - Pyrexia [Unknown]
  - Cough [Unknown]
  - Movement disorder [Unknown]
